FAERS Safety Report 25589798 (Version 1)
Quarter: 2025Q3

REPORT INFORMATION
  Report Type: Spontaneous
  Country: CH (occurrence: CH)
  Receive Date: 20250722
  Receipt Date: 20250722
  Transmission Date: 20251020
  Serious: Yes (Other)
  Sender: IMMUNOCORE
  Company Number: CH-IMMUNOCORE, LTD.-2025-IMC-004422

PATIENT

DRUGS (4)
  1. TEBENTAFUSP [Suspect]
     Active Substance: TEBENTAFUSP
     Indication: Metastatic ocular melanoma
     Dates: start: 20250424, end: 20250424
  2. TEBENTAFUSP [Suspect]
     Active Substance: TEBENTAFUSP
     Dates: start: 20250429, end: 20250429
  3. TEBENTAFUSP [Suspect]
     Active Substance: TEBENTAFUSP
     Dates: start: 20250506, end: 20250620
  4. TEBENTAFUSP [Suspect]
     Active Substance: TEBENTAFUSP
     Dates: start: 20250627, end: 20250627

REACTIONS (1)
  - Malignant neoplasm progression [Unknown]
